FAERS Safety Report 8379333-2 (Version None)
Quarter: 2012Q2

REPORT INFORMATION
  Report Type: 
  Country: None (occurrence: None)
  Receive Date: 20120523
  Receipt Date: 20120517
  Transmission Date: 20120825
  Serious: Yes (Hospitalization, Other)
  Sender: FDA-Public Use
  Company Number: PHHY2010CA35367

PATIENT
  Sex: Male

DRUGS (4)
  1. ZOMETA [Suspect]
     Indication: THYMIC CANCER METASTATIC
     Dosage: 4 MG EVERY 3 WEEKS
     Dates: start: 20100526
  2. AREDIA [Suspect]
     Indication: THYMIC CANCER METASTATIC
  3. SANDOSTATIN [Suspect]
     Indication: THYMIC CANCER METASTATIC
     Dosage: 30 MG, ONCE IN 4 WEEKS
     Route: 030
     Dates: start: 20081224
  4. AFINITOR [Suspect]
     Indication: THYMIC CANCER METASTATIC
     Dosage: 10 MG,
     Route: 048

REACTIONS (10)
  - CARBON DIOXIDE INCREASED [None]
  - ANION GAP DECREASED [None]
  - DEHYDRATION [None]
  - MALAISE [None]
  - NASOPHARYNGITIS [None]
  - BLOOD PHOSPHORUS DECREASED [None]
  - PNEUMONIA [None]
  - HEART RATE INCREASED [None]
  - BLOOD CALCIUM INCREASED [None]
  - PULMONARY EMBOLISM [None]
